FAERS Safety Report 8487081-3 (Version None)
Quarter: 2012Q3

REPORT INFORMATION
  Report Type: 
  Country: None (occurrence: None)
  Receive Date: 20120704
  Receipt Date: 20120702
  Transmission Date: 20120928
  Serious: Yes (Hospitalization)
  Sender: FDA-Public Use
  Company Number: PHHY2012NL056868

PATIENT
  Sex: Male
  Weight: 92 kg

DRUGS (2)
  1. INTERFERON [Concomitant]
  2. SANDOSTATIN LAR [Suspect]
     Indication: PANCREATIC NEUROENDOCRINE TUMOUR
     Dosage: 60 MG ONCE EVERY 3 WEEKS
     Dates: start: 20050808

REACTIONS (4)
  - OLIGURIA [None]
  - BACK PAIN [None]
  - PYREXIA [None]
  - DYSURIA [None]
